FAERS Safety Report 17720091 (Version 24)
Quarter: 2020Q4

REPORT INFORMATION
  Report Type: Report from Study
  Country: CA (occurrence: CA)
  Receive Date: 20200428
  Receipt Date: 20201019
  Transmission Date: 20210113
  Serious: Yes (Death, Other)
  Sender: FDA-Public Use
  Company Number: CA-SHIRE-CA201944788

PATIENT

DRUGS (19)
  1. IDURSULFASE [Suspect]
     Active Substance: IDURSULFASE
     Dosage: 4 DOSAGE FORM, 1X/WEEK
     Route: 065
     Dates: start: 2020
  2. IDURSULFASE [Suspect]
     Active Substance: IDURSULFASE
     Dosage: 24 MILLIGRAM OR 4 VIALS, 1X/WEEK
     Route: 065
     Dates: start: 20151111
  3. HEPARIN [Concomitant]
     Active Substance: HEPARIN SODIUM
     Indication: PRODUCT USED FOR UNKNOWN INDICATION
  4. IDURSULFASE [Suspect]
     Active Substance: IDURSULFASE
     Dosage: 24 MILLIGRAM (4 VIALS), 1X/WEEK
     Route: 065
     Dates: start: 20200130
  5. IDURSULFASE [Suspect]
     Active Substance: IDURSULFASE
     Dosage: 4 DOSAGE FORM, 1X/WEEK
     Route: 065
     Dates: start: 20200312
  6. IDURSULFASE [Suspect]
     Active Substance: IDURSULFASE
     Dosage: 4 DOSAGE FORM, 1X/WEEK
     Route: 065
     Dates: start: 20200423
  7. IDURSULFASE [Suspect]
     Active Substance: IDURSULFASE
     Dosage: 4 DOSAGE FORM, 1X/WEEK
     Route: 065
     Dates: start: 20200618
  8. IDURSULFASE [Suspect]
     Active Substance: IDURSULFASE
     Dosage: 24 MILLIGRAM, 1X/WEEK
     Route: 065
     Dates: start: 20151111
  9. IDURSULFASE [Suspect]
     Active Substance: IDURSULFASE
     Dosage: 24 MILLIGRAM OR 4 VIALS, 1X/WEEK
     Route: 065
     Dates: start: 20151111, end: 2020
  10. IDURSULFASE [Suspect]
     Active Substance: IDURSULFASE
     Dosage: 4 DOSAGE FORM, 1X/WEEK
     Route: 065
     Dates: start: 20200409
  11. SODIUM CHLORIDE. [Concomitant]
     Active Substance: SODIUM CHLORIDE
     Indication: PRODUCT USED FOR UNKNOWN INDICATION
  12. IDURSULFASE [Suspect]
     Active Substance: IDURSULFASE
     Dosage: UNK
     Route: 065
     Dates: start: 20200206
  13. IDURSULFASE [Suspect]
     Active Substance: IDURSULFASE
     Dosage: 24 MILLIGRAM (4 VIALS), 1X/WEEK
     Route: 065
     Dates: start: 20200220
  14. IDURSULFASE [Suspect]
     Active Substance: IDURSULFASE
     Dosage: UNK
     Route: 065
     Dates: start: 20200213
  15. IDURSULFASE [Suspect]
     Active Substance: IDURSULFASE
     Dosage: 4 DOSAGE FORM, 1X/WEEK
     Route: 065
     Dates: start: 20151111
  16. IDURSULFASE [Suspect]
     Active Substance: IDURSULFASE
     Dosage: 4 DOSAGE FORM (24 MILLIGRAM), 1X/WEEK
     Route: 065
     Dates: start: 20151111
  17. IDURSULFASE [Suspect]
     Active Substance: IDURSULFASE
     Dosage: 24 MILLIGRAM (4 VIALS), 1X/WEEK
     Route: 065
     Dates: start: 20200227
  18. IDURSULFASE [Suspect]
     Active Substance: IDURSULFASE
     Dosage: 24 MILLIGRAM (4 VIALS), 1X/WEEK
     Route: 065
     Dates: start: 20200305
  19. IDURSULFASE [Suspect]
     Active Substance: IDURSULFASE
     Indication: MUCOPOLYSACCHARIDOSIS II
     Dosage: 24 MILLIGRAM (4 VIALS), 1X/WEEK
     Route: 065
     Dates: start: 20151111

REACTIONS (36)
  - Death [Fatal]
  - Haemoptysis [Unknown]
  - Anxiety [Unknown]
  - Malaise [Unknown]
  - Diarrhoea [Unknown]
  - Respiratory rate increased [Unknown]
  - Skin striae [Unknown]
  - Abdominal distension [Unknown]
  - Heart rate increased [Unknown]
  - Heart rate decreased [Unknown]
  - Weight increased [Unknown]
  - Secretion discharge [Unknown]
  - Tracheal dilatation [Unknown]
  - Product dose omission issue [Not Recovered/Not Resolved]
  - Hypertension [Unknown]
  - Fear [Unknown]
  - Seizure [Recovered/Resolved]
  - Body temperature increased [Unknown]
  - Poor venous access [Unknown]
  - Pupils unequal [Unknown]
  - Body temperature decreased [Unknown]
  - Swelling [Unknown]
  - Palliative care [Unknown]
  - Infusion related reaction [Unknown]
  - Crying [Not Recovered/Not Resolved]
  - Depressed mood [Not Recovered/Not Resolved]
  - Peripheral coldness [Not Recovered/Not Resolved]
  - Abdominal discomfort [Unknown]
  - Hypotension [Unknown]
  - Weight decreased [Unknown]
  - Ear haemorrhage [Unknown]
  - Bruxism [Unknown]
  - Pallor [Unknown]
  - Cough [Unknown]
  - Wheezing [Unknown]
  - Bowel movement irregularity [Not Recovered/Not Resolved]

NARRATIVE: CASE EVENT DATE: 20191216
